FAERS Safety Report 4361528-6 (Version None)
Quarter: 2004Q2

REPORT INFORMATION
  Report Type: 
  Country: None (occurrence: None)
  Receive Date: 20040521
  Receipt Date: 20040302
  Transmission Date: 20050107
  Serious: No
  Sender: FDA-Public Use
  Company Number: US-GLAXOSMITHKLINE-A0500839A

PATIENT
  Sex: Male

DRUGS (4)
  1. ZYBAN [Suspect]
     Dosage: 150MG TWICE PER DAY
     Route: 048
     Dates: start: 20040201
  2. IMITREX [Concomitant]
     Route: 045
  3. AMERGE [Concomitant]
  4. VERAPAMIL [Concomitant]

REACTIONS (2)
  - INSOMNIA [None]
  - UNEXPECTED THERAPEUTIC DRUG EFFECT [None]
